FAERS Safety Report 16121237 (Version 2)
Quarter: 2019Q2

REPORT INFORMATION
  Report Type: Spontaneous
  Country: FR (occurrence: FR)
  Receive Date: 20190327
  Receipt Date: 20190417
  Transmission Date: 20190711
  Serious: Yes (Life-Threatening)
  Sender: FDA-Public Use
  Company Number: FR-AXELLIA-002332

PATIENT
  Age: 28 Year
  Sex: Male
  Weight: 85 kg

DRUGS (5)
  1. XARELTO [Suspect]
     Active Substance: RIVAROXABAN
     Indication: EMBOLISM
     Route: 048
     Dates: start: 20190114, end: 20190201
  2. CEFAZOLIN [Suspect]
     Active Substance: CEFAZOLIN
     Indication: OSTEOMYELITIS
     Route: 042
     Dates: start: 20190126, end: 20190130
  3. VANCOMYCIN [Suspect]
     Active Substance: VANCOMYCIN
     Indication: OSTEOMYELITIS
     Route: 042
     Dates: start: 20181223, end: 20190126
  4. AMOXICILLIN. [Suspect]
     Active Substance: AMOXICILLIN
     Indication: OSTEOMYELITIS
     Route: 042
     Dates: start: 20190126, end: 20190130
  5. CEFOTAXIME [Suspect]
     Active Substance: CEFOTAXIME SODIUM
     Indication: OSTEOMYELITIS
     Route: 042
     Dates: start: 20181223, end: 20190126

REACTIONS (6)
  - Inflammation [Recovering/Resolving]
  - Eosinophilia [Recovering/Resolving]
  - Rash vesicular [Recovering/Resolving]
  - Rash maculo-papular [Recovering/Resolving]
  - Purpura [Recovering/Resolving]
  - Transaminases increased [Recovering/Resolving]

NARRATIVE: CASE EVENT DATE: 201901
